FAERS Safety Report 11347587 (Version 1)
Quarter: 2015Q3

REPORT INFORMATION
  Report Type: Spontaneous
  Country: US (occurrence: US)
  Receive Date: 20150803
  Receipt Date: 20150803
  Transmission Date: 20151125
  Serious: Yes (Other)
  Sender: FDA-Public Use
  Company Number: US-ELI_LILLY_AND_COMPANY-US201103003370

PATIENT
  Age: 13 Year
  Sex: Male
  Weight: 74.38 kg

DRUGS (4)
  1. ABILIFY [Concomitant]
     Active Substance: ARIPIPRAZOLE
  2. STRATTERA [Suspect]
     Active Substance: ATOMOXETINE HYDROCHLORIDE
     Indication: ATTENTION DEFICIT/HYPERACTIVITY DISORDER
     Dosage: 18 MG, EACH MORNING
  3. STRATTERA [Suspect]
     Active Substance: ATOMOXETINE HYDROCHLORIDE
     Dosage: 60 MG, EACH EVENING
  4. STRATTERA [Suspect]
     Active Substance: ATOMOXETINE HYDROCHLORIDE
     Dosage: 25 MG, EACH MORNING

REACTIONS (5)
  - Weight decreased [Unknown]
  - Suicidal ideation [Unknown]
  - Aggression [Unknown]
  - Vomiting [Unknown]
  - Insomnia [Unknown]
